FAERS Safety Report 8993150 (Version 1)
Quarter: 2013Q1

REPORT INFORMATION
  Report Type: Spontaneous
  Country: GB (occurrence: GB)
  Receive Date: 20130102
  Receipt Date: 20130102
  Transmission Date: 20140127
  Serious: Yes (Hospitalization, Disabling, Other)
  Sender: FDA-Public Use
  Company Number: GB-BAXTER-2012BAX027436

PATIENT
  Age: 59 Year
  Sex: Female
  Weight: 99.6 kg

DRUGS (62)
  1. CYCLOPHOSPHAMIDE INJECTION 500 MG [Suspect]
     Indication: B-CELL LYMPHOMA
     Route: 042
     Dates: start: 20120312
  2. CYCLOPHOSPHAMIDE INJECTION 500 MG [Suspect]
     Route: 042
     Dates: start: 20120614
  3. DOXORUBICIN HYDROCHLORIDE [Suspect]
     Indication: B-CELL LYMPHOMA
     Route: 042
     Dates: start: 20120312
  4. DOXORUBICIN HYDROCHLORIDE [Suspect]
     Route: 042
     Dates: start: 20120614
  5. PREDNISONE [Suspect]
     Indication: B-CELL LYMPHOMA
     Route: 048
     Dates: start: 20120312
  6. PREDNISONE [Suspect]
     Route: 048
     Dates: start: 20120614
  7. VINCRISTINE SULFATE [Suspect]
     Indication: B-CELL LYMPHOMA
     Route: 040
     Dates: start: 20120312
  8. VINCRISTINE SULFATE [Suspect]
     Route: 040
     Dates: start: 20120614
  9. HUMAN ACTRAPID [Concomitant]
     Indication: BLOOD GLUCOSE INCREASED
     Dates: start: 20120727, end: 20120727
  10. ACICLOVIR [Concomitant]
     Indication: PRODUCT USED FOR UNKNOWN INDICATION
     Dates: start: 20120711, end: 20120727
  11. ALLOPURINOL [Concomitant]
     Indication: PRODUCT USED FOR UNKNOWN INDICATION
     Route: 065
     Dates: start: 20120309
  12. AMBISOME [Concomitant]
     Indication: PRODUCT USED FOR UNKNOWN INDICATION
     Route: 065
     Dates: start: 20120713, end: 20120713
  13. AMILORIDE [Concomitant]
     Indication: FLUID RETENTION
     Dates: start: 20120713, end: 20120817
  14. CALCIUM GLUCONATE [Concomitant]
     Indication: BLOOD CALCIUM DECREASED
     Route: 065
     Dates: start: 20120722, end: 20120722
  15. CANESTEN [Concomitant]
     Indication: CANDIDA INFECTION
     Route: 065
     Dates: start: 20120708, end: 20120726
  16. CHLORHEXIDINE [Concomitant]
     Indication: MUCOSAL INFLAMMATION
     Route: 065
     Dates: start: 20120711, end: 20120727
  17. CHLORPHENAMINE [Concomitant]
     Indication: ERYTHEMA
     Route: 065
     Dates: start: 20120714
  18. CIPROFLOXACIN [Concomitant]
     Indication: INFECTION
     Route: 065
     Dates: start: 20120518, end: 20120910
  19. AMOXICILLIN\CLAVULANATE POTASSIUM [Concomitant]
     Indication: URINARY TRACT INFECTION
     Dates: start: 20120827, end: 20120831
  20. CO-CODAMOL [Concomitant]
     Indication: OSTEOARTHRITIS
     Route: 065
  21. CORSODYL [Concomitant]
     Indication: PRODUCT USED FOR UNKNOWN INDICATION
     Route: 065
     Dates: start: 20120625, end: 20120627
  22. CYCLIZINE [Concomitant]
     Indication: NAUSEA
     Route: 065
     Dates: start: 20120604
  23. DEXAMETHASONE [Concomitant]
     Indication: PRODUCT USED FOR UNKNOWN INDICATION
     Route: 065
     Dates: start: 20120702, end: 20120702
  24. DOMPERIDONE [Concomitant]
     Indication: NAUSEA
     Route: 065
     Dates: start: 20120312
  25. ENOXAPARIN [Concomitant]
     Indication: INFECTION
     Route: 065
     Dates: start: 20120629, end: 20120714
  26. FERROUS SULFATE [Concomitant]
     Indication: ANAEMIA
     Route: 065
     Dates: start: 20120626, end: 20120711
  27. FILGRASTIM [Concomitant]
     Indication: NEUTROPENIA
     Route: 065
     Dates: start: 20120712, end: 20120712
  28. FLUCLOXACILLIN [Concomitant]
     Indication: PRODUCT USED FOR UNKNOWN INDICATION
     Route: 065
     Dates: start: 20120609, end: 20120825
  29. FLUCONAZOLE [Concomitant]
     Indication: INFECTION
     Route: 065
     Dates: start: 20120713, end: 20120718
  30. FOLIC ACID [Concomitant]
     Indication: PRODUCT USED FOR UNKNOWN INDICATION
     Route: 065
     Dates: start: 20120624, end: 20120704
  31. FUROSEMIDE [Concomitant]
     Indication: OEDEMA
     Route: 065
     Dates: start: 20120724, end: 20120724
  32. GELOFUSINE [Concomitant]
     Indication: PRODUCT USED FOR UNKNOWN INDICATION
     Route: 065
  33. GLUCOSE [Concomitant]
     Indication: BLOOD GLUCOSE DECREASED
     Route: 065
     Dates: start: 20120801, end: 20120801
  34. HALOPERIDOL [Concomitant]
     Indication: NAUSEA
     Route: 065
     Dates: start: 20120904, end: 20120926
  35. HORMONIN [Concomitant]
     Indication: MENOPAUSAL SYMPTOMS
     Route: 065
     Dates: start: 20120727, end: 20120727
  36. GRANULOCYTE MACROPHAGE COLONY STIM FACTOR [Concomitant]
     Indication: NEUTROPENIA
     Route: 065
     Dates: start: 20120712, end: 20120712
  37. HYDROCORTISONE [Concomitant]
     Indication: PRODUCT USED FOR UNKNOWN INDICATION
     Route: 065
     Dates: start: 20120708
  38. LANSOPRAZOLE [Concomitant]
     Indication: HIATUS HERNIA
     Route: 065
  39. LEVOMEPROMAZINE [Concomitant]
     Indication: ANXIETY
     Route: 065
     Dates: start: 20120718, end: 20120718
  40. LORAZEPAM [Concomitant]
     Indication: ANXIETY
     Route: 065
     Dates: start: 20120712, end: 20120713
  41. MAGNESIUM [Concomitant]
     Indication: BLOOD MAGNESIUM DECREASED
     Route: 065
     Dates: start: 20120624, end: 20120624
  42. MEROPENEM [Concomitant]
     Indication: INFECTION
     Route: 065
     Dates: start: 20120711, end: 20120810
  43. METARAMINOL [Concomitant]
     Indication: HYPOTENSION
     Route: 065
     Dates: start: 20120731, end: 20120731
  44. METOCLOPRAMIDE [Concomitant]
     Indication: NAUSEA
     Route: 065
     Dates: start: 20120410, end: 20120927
  45. METRONIDAZOLE [Concomitant]
     Indication: INFECTION
     Route: 065
     Dates: start: 20120911, end: 20120920
  46. MIDAZOLAM [Concomitant]
     Indication: ANXIETY
     Route: 065
     Dates: start: 20120731, end: 20120731
  47. NAPROXEN [Concomitant]
     Indication: OSTEOARTHRITIS
     Route: 065
  48. NYSTATIN [Concomitant]
     Indication: ORAL CANDIDIASIS
     Route: 065
     Dates: start: 20120609, end: 20120921
  49. ONDANSETRON [Concomitant]
     Indication: PROPHYLAXIS
     Route: 065
     Dates: start: 20120312
  50. ORAMORPH [Concomitant]
     Indication: PRODUCT USED FOR UNKNOWN INDICATION
     Route: 065
  51. PARACETAMOL [Concomitant]
     Indication: ARTHRALGIA
     Route: 065
     Dates: start: 20120312
  52. PHOSPHATE-SANDOZ [Concomitant]
     Indication: PRODUCT USED FOR UNKNOWN INDICATION
     Route: 065
  53. PLATELETS [Concomitant]
     Indication: PLATELET COUNT DECREASED
     Route: 065
     Dates: start: 20120804, end: 20120804
  54. PREDNISOLONE [Concomitant]
     Indication: PRODUCT USED FOR UNKNOWN INDICATION
     Route: 065
     Dates: start: 20120312
  55. QUININE SULFATE [Concomitant]
     Indication: NIGHT SWEATS
     Route: 065
  56. SANDO-K [Concomitant]
     Indication: BLOOD POTASSIUM DECREASED
     Route: 065
     Dates: start: 20120714, end: 20120808
  57. SERTRALINE [Concomitant]
     Indication: DEPRESSION
     Route: 065
  58. SLOW-K [Concomitant]
     Indication: BLOOD POTASSIUM DECREASED
     Route: 065
     Dates: start: 20120808, end: 20120810
  59. SPIRONOLACTONE [Concomitant]
     Indication: OEDEMA
     Route: 065
     Dates: start: 20120730, end: 20120803
  60. TEICOPLANIN [Concomitant]
     Indication: INFECTION
     Dates: start: 20120624, end: 20120705
  61. VANCOMYCIN [Concomitant]
     Indication: INFECTION
     Route: 065
     Dates: start: 20120705, end: 20120705
  62. VANCOMYCIN [Concomitant]
     Route: 065
     Dates: start: 20120705, end: 20120712

REACTIONS (6)
  - Pulmonary embolism [Recovered/Resolved]
  - Pulmonary cavitation [Recovered/Resolved]
  - Respiratory failure [Recovered/Resolved]
  - Lung infection [Recovered/Resolved]
  - Respiratory tract infection bacterial [None]
  - Respiratory tract infection fungal [None]
